FAERS Safety Report 5170004-2 (Version None)
Quarter: 2006Q4

REPORT INFORMATION
  Report Type: 
  Country: None (occurrence: None)
  Receive Date: 20061212
  Receipt Date: 20061204
  Transmission Date: 20070319
  Serious: Yes (Hospitalization)
  Sender: FDA-Public Use
  Company Number: GB-GLAXOSMITHKLINE-B0449924A

PATIENT
  Age: 12 Year
  Sex: Female

DRUGS (2)
  1. CEFTAZIDIME [Suspect]
     Indication: DRUG USE FOR UNKNOWN INDICATION
     Route: 042
  2. GENTAMICIN [Suspect]
     Route: 042

REACTIONS (1)
  - RENAL FAILURE ACUTE [None]
